FAERS Safety Report 8966418 (Version 1)
Quarter: 2012Q4

REPORT INFORMATION
  Report Type: 
  Country: IT (occurrence: IT)
  Receive Date: 20121214
  Receipt Date: 20121214
  Transmission Date: 20130627
  Serious: Yes (Other)
  Sender: FDA-Public Use
  Company Number: IT-GLAXOSMITHKLINE-B0851846A

PATIENT
  Age: 73 Year
  Sex: Female

DRUGS (1)
  1. FLUTICASONE PROPIONATE\SALMETEROL XINAFOATE [Suspect]
     Indication: RESPIRATORY DISORDER
     Route: 055
     Dates: start: 1995

REACTIONS (2)
  - Pneumonia [Unknown]
  - Alopecia [Unknown]
